FAERS Safety Report 7936737-7 (Version None)
Quarter: 2011Q4

REPORT INFORMATION
  Report Type: 
  Country: None (occurrence: None)
  Receive Date: 20111123
  Receipt Date: 20111121
  Transmission Date: 20120403
  Serious: Yes (Hospitalization)
  Sender: FDA-Public Use
  Company Number: JP-BAYER-2011-111318

PATIENT
  Age: 61 Year
  Sex: Male

DRUGS (2)
  1. CLOPIDOGREL BISULFATE [Suspect]
     Indication: BRAIN STEM INFARCTION
     Dosage: UNK
     Route: 048
     Dates: start: 20110101
  2. ASPIRIN [Suspect]
     Indication: BRAIN STEM INFARCTION
     Dosage: UNK
     Route: 048
     Dates: start: 20110101

REACTIONS (1)
  - CEREBRAL HAEMORRHAGE [None]
